FAERS Safety Report 24304610 (Version 1)
Quarter: 2024Q3

REPORT INFORMATION
  Report Type: Other
  Country: US (occurrence: US)
  Receive Date: 20240910
  Receipt Date: 20240910
  Transmission Date: 20241016
  Serious: No
  Sender: SIGMA TAU
  Company Number: US-LEADIANT BIOSCIENCES, INC.-2023STPI000404

PATIENT
  Sex: Male

DRUGS (1)
  1. MATULANE [Suspect]
     Active Substance: PROCARBAZINE HYDROCHLORIDE
     Indication: Brain neoplasm malignant
     Dosage: 50 MILLIGRAMS, 1 CAPSULES (50MG TOTAL) EVERY 6 HOURS FOR A TOTAL OF 4 DOSES PER DAY, AS DIRECTED, EV
     Route: 048
     Dates: start: 20230620

REACTIONS (1)
  - Neutrophil count decreased [Unknown]
